FAERS Safety Report 25093156 (Version 1)
Quarter: 2025Q1

REPORT INFORMATION
  Report Type: Spontaneous
  Country: US (occurrence: US)
  Receive Date: 20250319
  Receipt Date: 20250319
  Transmission Date: 20250408
  Serious: No
  Sender: ALEXION PHARMACEUTICALS
  Company Number: US-AstraZeneca-CH-00830449A

PATIENT

DRUGS (1)
  1. FARXIGA [Suspect]
     Active Substance: DAPAGLIFLOZIN PROPANEDIOL
     Route: 065

REACTIONS (11)
  - Adverse drug reaction [Unknown]
  - Blood glucose decreased [Unknown]
  - Glycosylated haemoglobin increased [Unknown]
  - Vulvovaginal swelling [Unknown]
  - Injection site mass [Unknown]
  - Mass excision [Unknown]
  - Bacterial infection [Unknown]
  - Pain [Unknown]
  - Anxiety [Unknown]
  - Gait disturbance [Unknown]
  - Therapy cessation [Unknown]
